FAERS Safety Report 4773857-2 (Version None)
Quarter: 2005Q3

REPORT INFORMATION
  Report Type: 
  Country: None (occurrence: None)
  Receive Date: 20050920
  Receipt Date: 20050407
  Transmission Date: 20060218
  Serious: Yes (Death)
  Sender: FDA-Public Use
  Company Number: US-ROCHE-400953

PATIENT
  Age: 55 Year
  Sex: Male

DRUGS (7)
  1. PEG-INTERFERON ALFA 2A (RO 25-8310) [Suspect]
     Route: 058
     Dates: start: 20041201
  2. VIRAMIDINE [Suspect]
     Route: 048
     Dates: start: 20041201
  3. IBUPROFEN [Concomitant]
     Indication: CHILLS
     Dates: start: 20041201
  4. VITAMIN [Concomitant]
     Dosage: DRUG NAME REPORTED AS AIRBOURNE VITAMINS (GENERIC UNKNOWN)
     Dates: start: 20041025
  5. PHENYTOIN [Concomitant]
     Indication: EPILEPSY
     Dates: start: 19660615
  6. CEPHALEXIN [Concomitant]
     Indication: STAPHYLOCOCCAL INFECTION
     Dates: start: 20050125
  7. VITAMIN C AND E [Concomitant]
     Dates: start: 20041015

REACTIONS (4)
  - ARTERIOSCLEROSIS [None]
  - CARDIOMEGALY [None]
  - CORONARY ARTERY OCCLUSION [None]
  - PULMONARY CONGESTION [None]
